FAERS Safety Report 11509529 (Version 2)
Quarter: 2015Q4

REPORT INFORMATION
  Report Type: Spontaneous
  Country: AU (occurrence: AU)
  Receive Date: 20150915
  Receipt Date: 20151012
  Transmission Date: 20160304
  Serious: Yes (Hospitalization, Other)
  Sender: FDA-Public Use
  Company Number: AU-OTSUKA-2015_009698

PATIENT

DRUGS (1)
  1. ARIPIPRAZOLE. [Suspect]
     Active Substance: ARIPIPRAZOLE
     Indication: BIPOLAR DISORDER
     Dosage: 15 MG, UNK
     Route: 048
     Dates: start: 20150626, end: 20150702

REACTIONS (4)
  - Rhabdomyolysis [Unknown]
  - Myositis [Recovering/Resolving]
  - Blood creatine phosphokinase increased [Recovered/Resolved]
  - Muscle spasms [Recovered/Resolved]
